FAERS Safety Report 6349426-X (Version None)
Quarter: 2009Q3

REPORT INFORMATION
  Report Type: 
  Country: None (occurrence: None)
  Receive Date: 20090911
  Receipt Date: 20090909
  Transmission Date: 20100115
  Serious: Yes (Other)
  Sender: FDA-Public Use
  Company Number: FR-BRISTOL-MYERS SQUIBB COMPANY-14642565

PATIENT
  Age: 19 Year
  Sex: Female

DRUGS (4)
  1. SUSTIVA [Interacting]
     Indication: HIV INFECTION
     Route: 048
     Dates: start: 20080724
  2. IMPLANON [Interacting]
     Indication: HIV INFECTION
     Dates: start: 20080215
  3. TRUVADA [Suspect]
     Dates: start: 20080724
  4. ZELITREX [Concomitant]
     Dates: start: 20080918

REACTIONS (2)
  - DRUG INTERACTION [None]
  - PREGNANCY [None]
